FAERS Safety Report 6065960-4 (Version None)
Quarter: 2009Q1

REPORT INFORMATION
  Report Type: 
  Country: None (occurrence: None)
  Receive Date: 20090205
  Receipt Date: 20090202
  Transmission Date: 20090719
  Serious: Yes (Hospitalization)
  Sender: FDA-Public Use
  Company Number: FR-BRISTOL-MYERS SQUIBB COMPANY-14491583

PATIENT
  Age: 80 Year
  Sex: Female

DRUGS (8)
  1. COAPROVEL FILM-COATED TABS [Suspect]
     Indication: HYPERTENSION
     Dosage: 1 DF = 300MG/25MG
     Route: 048
     Dates: start: 20081217, end: 20090109
  2. CEFTAZIDIME [Concomitant]
     Indication: ANGINA PECTORIS
     Dosage: 1 TRANSDERMAL PATCH; 1 DF= 5MG/24H
     Route: 062
     Dates: start: 20060101
  3. KARDEGIC [Concomitant]
     Indication: ANGINA PECTORIS
     Dosage: 1 DF =75MG
     Route: 048
  4. CRESTOR [Concomitant]
     Indication: DYSLIPIDAEMIA
     Dosage: 1 TABLET
     Route: 048
  5. PROTELOS [Concomitant]
     Dosage: 1 INTAKE
     Route: 048
  6. OGASTORO [Concomitant]
     Dosage: 1 TABLET
  7. EFFERALGAN [Concomitant]
     Indication: NECK PAIN
     Dosage: 3 TABLETS
     Route: 048
  8. METEOSPASMYL [Concomitant]
     Dosage: 3 CAPSULES
     Route: 048

REACTIONS (2)
  - FALL [None]
  - MALAISE [None]
